FAERS Safety Report 6524560-X (Version None)
Quarter: 2009Q4

REPORT INFORMATION
  Report Type: 
  Country: None (occurrence: None)
  Receive Date: 20091231
  Receipt Date: 20091231
  Transmission Date: 20100525
  Serious: Yes (Death)
  Sender: FDA-Public Use
  Company Number: None

PATIENT
  Sex: Female
  Weight: 67.586 kg

DRUGS (3)
  1. TYLENOL (CAPLET) [Suspect]
     Indication: BACK PAIN
     Dosage: 2-3 PRN PO (12/17/09 @1800 + 12/18/09 @0100 (PER SPOUSE) )
     Route: 048
  2. SEASONAL FLU VACCINE [Concomitant]
  3. H1N1 FLU VACCINE [Concomitant]

REACTIONS (3)
  - CARDIO-RESPIRATORY ARREST [None]
  - UNRESPONSIVE TO STIMULI [None]
  - VOMITING [None]
